FAERS Safety Report 16797526 (Version 3)
Quarter: 2019Q4

REPORT INFORMATION
  Report Type: Report from Study
  Country: US (occurrence: US)
  Receive Date: 20190912
  Receipt Date: 20191213
  Transmission Date: 20200122
  Serious: No
  Sender: FDA-Public Use
  Company Number: PHEH2019US036935

PATIENT
  Sex: Female

DRUGS (1)
  1. PIQRAY [Suspect]
     Active Substance: ALPELISIB
     Indication: PRODUCT USED FOR UNKNOWN INDICATION
     Route: 048

REACTIONS (15)
  - Blood glucose increased [Not Recovered/Not Resolved]
  - Nausea [Unknown]
  - Swelling [Recovered/Resolved]
  - Taste disorder [Unknown]
  - Dyspnoea [Recovered/Resolved]
  - Erythema [Recovered/Resolved]
  - Asthenia [Unknown]
  - Dry skin [Unknown]
  - Pruritus [Unknown]
  - Rash [Recovered/Resolved]
  - Heart rate increased [Unknown]
  - Fatigue [Unknown]
  - Swelling face [Recovered/Resolved]
  - Dry mouth [Unknown]
  - Weight decreased [Unknown]
